FAERS Safety Report 7507028-3 (Version None)
Quarter: 2011Q2

REPORT INFORMATION
  Report Type: 
  Country: None (occurrence: None)
  Receive Date: 20110526
  Receipt Date: 20110518
  Transmission Date: 20111010
  Serious: Yes (Hospitalization)
  Sender: FDA-Public Use
  Company Number: US-B.I. PHARMACEUTICALS,INC./RIDGEFIELD-2011-BP-10591BP

PATIENT
  Age: 77 Year
  Sex: Male
  Weight: 103.42 kg

DRUGS (6)
  1. ASPIRIN [Concomitant]
  2. ZIAC [Concomitant]
  3. EXFORGE [Concomitant]
  4. PRADAXA [Suspect]
     Indication: ATRIAL FIBRILLATION
     Dates: start: 20110224, end: 20110226
  5. LIPITOR [Concomitant]
  6. ACETAMINOPHEN [Concomitant]

REACTIONS (1)
  - DIVERTICULUM INTESTINAL HAEMORRHAGIC [None]
